FAERS Safety Report 4293136-X (Version None)
Quarter: 2004Q1

REPORT INFORMATION
  Report Type: 
  Country: None (occurrence: None)
  Receive Date: 20040210
  Receipt Date: 20040129
  Transmission Date: 20041129
  Serious: Yes (Hospitalization)
  Sender: FDA-Public Use
  Company Number: FR-JNJFOC-20031101027

PATIENT
  Age: 33 Year
  Sex: Female
  Weight: 52 kg

DRUGS (4)
  1. REMICADE [Suspect]
     Indication: RHEUMATOID ARTHRITIS
     Dosage: 200 MG 1 IN 1 DAY, INTRAVENOUS
     Route: 042
     Dates: start: 20020615, end: 20030707
  2. PROZAC [Concomitant]
  3. METHOTREXATE [Concomitant]
  4. ATARAX [Concomitant]

REACTIONS (4)
  - APHTHOUS STOMATITIS [None]
  - ARTHROPATHY [None]
  - DRUG HYPERSENSITIVITY [None]
  - ERYTHEMA MULTIFORME [None]
